FAERS Safety Report 23132981 (Version 1)
Quarter: 2023Q4

REPORT INFORMATION
  Report Type: Spontaneous
  Country: ES (occurrence: ES)
  Receive Date: 20231101
  Receipt Date: 20231101
  Transmission Date: 20240109
  Serious: Yes (Other)
  Sender: FDA-Public Use
  Company Number: None

PATIENT
  Age: 34 Year
  Sex: Female

DRUGS (1)
  1. OXYBUTYNIN [Suspect]
     Active Substance: OXYBUTYNIN
     Indication: Hyperhidrosis
     Dosage: OXIBUTININA (366A)
     Route: 065
     Dates: start: 2022

REACTIONS (1)
  - Anisocoria [Recovered/Resolved]

NARRATIVE: CASE EVENT DATE: 20231005
